FAERS Safety Report 6050370-6 (Version None)
Quarter: 2009Q1

REPORT INFORMATION
  Report Type: 
  Country: None (occurrence: None)
  Receive Date: 20090116
  Receipt Date: 20090109
  Transmission Date: 20090719
  Serious: No
  Sender: FDA-Public Use
  Company Number: 20096080

PATIENT
  Age: 28 Year
  Sex: Male

DRUGS (1)
  1. LIORESAL [Suspect]
     Indication: MUSCLE SPASTICITY
     Dosage: 519.3 MCG, DAILY, INTRATHECAL
     Route: 037

REACTIONS (9)
  - DECUBITUS ULCER [None]
  - HAEMATOMA [None]
  - INFECTION [None]
  - INFLAMMATION [None]
  - MASS [None]
  - MEDICAL DEVICE SITE REACTION [None]
  - OEDEMA [None]
  - SEROMA [None]
  - WRONG TECHNIQUE IN DRUG USAGE PROCESS [None]
